FAERS Safety Report 8997152 (Version 1)
Quarter: 2012Q4

REPORT INFORMATION
  Report Type: Spontaneous
  Country: DK (occurrence: None)
  Receive Date: 20121221
  Receipt Date: 20121221
  Transmission Date: 20130627
  Serious: Yes (Other)
  Sender: FDA-Public Use
  Company Number: 2012MA014149

PATIENT
  Age: 22 Year
  Sex: Female

DRUGS (3)
  1. IBUPROFEN ORAL SUSPENSION USP, 100 MG/5 ML (RX) (ALPHARMA) (IBUPROFEN) [Suspect]
     Indication: DRUG USE FOR UNKNOWN INDICATION
  2. METRONIDAZOLE (METRONIDAZOLE) [Suspect]
     Indication: DENTAL ABSCESS
     Route: 048
     Dates: start: 20121127, end: 20121130
  3. PARACETAMOL (CON.) [Concomitant]

REACTIONS (5)
  - Discomfort [None]
  - Gastric disorder [None]
  - Malaise [None]
  - Dysgeusia [None]
  - Dehydration [None]
